FAERS Safety Report 6738780-2 (Version None)
Quarter: 2010Q2

REPORT INFORMATION
  Report Type: 
  Country: None (occurrence: None)
  Receive Date: 20100524
  Receipt Date: 20100511
  Transmission Date: 20101027
  Serious: Yes (Life-Threatening, Hospitalization)
  Sender: FDA-Public Use
  Company Number: US-WATSON-2009-01122

PATIENT
  Sex: Female

DRUGS (9)
  1. TAZTIA XT (WATSON LABORATORIES) [Suspect]
     Indication: BLOOD PRESSURE
     Dosage: UNK
     Route: 048
     Dates: start: 20081101
  2. OTHER MEDICATION [Suspect]
     Indication: BLOOD PRESSURE
     Dosage: UNK
     Route: 065
  3. VASTOD [Concomitant]
     Indication: DRUG USE FOR UNKNOWN INDICATION
     Dosage: UNK
     Route: 065
  4. FAMCICLOVIR [Concomitant]
     Indication: DRUG USE FOR UNKNOWN INDICATION
     Dosage: UNK
     Route: 065
  5. METHYLPREDNISOLONE [Concomitant]
     Indication: DRUG USE FOR UNKNOWN INDICATION
     Dosage: ^4 MG DOSEPAK 21'S^
     Route: 065
  6. PROPOXYPHENE HCL AND ACETAMINOPHEN [Concomitant]
     Indication: DRUG USE FOR UNKNOWN INDICATION
     Dosage: UNK
     Route: 065
  7. ZOLPIDEM [Concomitant]
     Indication: DRUG USE FOR UNKNOWN INDICATION
     Dosage: UNK
     Route: 065
  8. ESTRADIOL [Concomitant]
     Indication: DRUG USE FOR UNKNOWN INDICATION
     Dosage: UNK
     Route: 065
  9. MEDROL [Concomitant]
     Indication: DRUG USE FOR UNKNOWN INDICATION
     Dosage: ^4 MG DOSEPAK 21'S^
     Route: 065

REACTIONS (27)
  - ALOPECIA [None]
  - ANXIETY [None]
  - APHASIA [None]
  - ASTHENIA [None]
  - BLOOD ARSENIC INCREASED [None]
  - DEPRESSION [None]
  - DIARRHOEA [None]
  - DRY MOUTH [None]
  - DYSGEUSIA [None]
  - DYSPNOEA [None]
  - FATIGUE [None]
  - GAIT DISTURBANCE [None]
  - HYPOAESTHESIA [None]
  - MALAISE [None]
  - METAL POISONING [None]
  - MOTOR DYSFUNCTION [None]
  - MUSCLE SPASMS [None]
  - MUSCLE TWITCHING [None]
  - NECK PAIN [None]
  - ONYCHOCLASIS [None]
  - PAIN [None]
  - PAIN IN EXTREMITY [None]
  - PARAESTHESIA [None]
  - POLYNEUROPATHY [None]
  - PRODUCT CONTAMINATION [None]
  - STRESS [None]
  - TOOTH INJURY [None]
